FAERS Safety Report 21313258 (Version 2)
Quarter: 2022Q4

REPORT INFORMATION
  Report Type: Report from Study
  Country: CO (occurrence: CO)
  Receive Date: 20220909
  Receipt Date: 20221021
  Transmission Date: 20230112
  Serious: Yes (Hospitalization)
  Sender: FDA-Public Use
  Company Number: CO-BRISTOL-MYERS SQUIBB COMPANY-2022-102901

PATIENT
  Age: 77 Year
  Sex: Female
  Weight: 70 kg

DRUGS (2)
  1. ORENCIA [Suspect]
     Active Substance: ABATACEPT
     Indication: Rheumatoid arthritis
     Dosage: 750 MG/ML
     Route: 042
     Dates: start: 20200424
  2. ORENCIA [Suspect]
     Active Substance: ABATACEPT
     Dosage: 750 MG/ML
     Route: 042
     Dates: start: 20220424

REACTIONS (1)
  - Cardiac disorder [Unknown]
